FAERS Safety Report 7866705-5 (Version None)
Quarter: 2011Q4

REPORT INFORMATION
  Report Type: 
  Country: None (occurrence: None)
  Receive Date: 20111028
  Receipt Date: 20110728
  Transmission Date: 20120403
  Serious: No
  Sender: FDA-Public Use
  Company Number: US-GLAXOSMITHKLINE-A0939567A

PATIENT
  Age: 15 Year
  Sex: Male
  Weight: 45.5 kg

DRUGS (1)
  1. ADVAIR DISKUS 100/50 [Suspect]
     Indication: OXYGEN SATURATION DECREASED
     Route: 055

REACTIONS (2)
  - GROWTH RETARDATION [None]
  - OXYGEN SATURATION DECREASED [None]
